FAERS Safety Report 10612957 (Version 2)
Quarter: 2014Q4

REPORT INFORMATION
  Report Type: Spontaneous
  Country: JP (occurrence: JP)
  Receive Date: 20141127
  Receipt Date: 20141225
  Transmission Date: 20150529
  Serious: Yes (Hospitalization, Other)
  Sender: FDA-Public Use
  Company Number: JP-BRISTOL-MYERS SQUIBB COMPANY-21644943

PATIENT
  Age: 69 Year
  Sex: Female
  Weight: 42.5 kg

DRUGS (5)
  1. ORENCIA [Suspect]
     Active Substance: ABATACEPT
     Indication: RHEUMATOID ARTHRITIS
     Dosage: 125 MG, QWK
     Route: 058
     Dates: start: 20141028, end: 20141104
  2. LOXOPROFEN [Concomitant]
     Active Substance: LOXOPROFEN
  3. EDIROL [Concomitant]
     Active Substance: ELDECALCITOL
  4. FAMOTIDINE. [Concomitant]
     Active Substance: FAMOTIDINE
  5. PREDONINE [Concomitant]
     Active Substance: PREDNISOLONE\PREDNISOLONE ACETATE\PREDNISOLONE SODIUM SUCCINATE

REACTIONS (2)
  - Decubitus ulcer [Recovering/Resolving]
  - Fall [Unknown]

NARRATIVE: CASE EVENT DATE: 20141110
